FAERS Safety Report 8063647-X (Version None)
Quarter: 2011Q4

REPORT INFORMATION
  Report Type: 
  Country: None (occurrence: None)
  Receive Date: 20111220
  Receipt Date: 20110531
  Transmission Date: 20120403
  Serious: Yes (Other)
  Sender: FDA-Public Use
  Company Number: 2011002728

PATIENT
  Age: 2 Year
  Sex: Female

DRUGS (1)
  1. ACTIQ [Suspect]
     Indication: LACERATION
     Dosage: (200 MCG), BU
     Route: 002

REACTIONS (3)
  - DRUG PRESCRIBING ERROR [None]
  - DRUG ADMINISTRATION ERROR [None]
  - SOMNOLENCE [None]
